FAERS Safety Report 10044710 (Version 1)
Quarter: 2014Q1

REPORT INFORMATION
  Report Type: Report from Study
  Country: IT (occurrence: IT)
  Receive Date: 20140328
  Receipt Date: 20140328
  Transmission Date: 20141002
  Serious: Yes (Hospitalization)
  Sender: FDA-Public Use
  Company Number: IT-AMGEN-ITANI2014020691

PATIENT
  Age: 34 Year
  Sex: Female

DRUGS (6)
  1. PEGFILGRASTIM [Suspect]
     Indication: HODGKIN^S DISEASE
     Dosage: 6 MG, UNK
     Route: 058
     Dates: start: 20090601
  2. CDDP [Concomitant]
     Dosage: 130 MG, UNK
     Route: 042
     Dates: start: 20090529
  3. VP-16 [Concomitant]
     Indication: HODGKIN^S DISEASE
     Dosage: 160 MG, QD
     Route: 042
     Dates: start: 20090529
  4. ARA-C [Concomitant]
     Indication: HODGKIN^S DISEASE
     Dosage: 3.3 G, QD
     Route: 042
     Dates: start: 20090529
  5. RITUXIMAB [Concomitant]
     Indication: HODGKIN^S DISEASE
     Dosage: 665 MG, QD
     Route: 042
     Dates: start: 20090529
  6. OMEPRAZOLE [Concomitant]
     Dosage: 20 MG, QD
     Dates: start: 20090529

REACTIONS (3)
  - Nausea [Recovered/Resolved]
  - Vomiting [Recovered/Resolved]
  - Posture abnormal [Recovered/Resolved]
